FAERS Safety Report 7700210-1 (Version None)
Quarter: 2011Q3

REPORT INFORMATION
  Report Type: 
  Country: None (occurrence: None)
  Receive Date: 20110822
  Receipt Date: 20110809
  Transmission Date: 20111222
  Serious: Yes (Hospitalization)
  Sender: FDA-Public Use
  Company Number: US-ELI_LILLY_AND_COMPANY-US201107003854

PATIENT
  Sex: Female
  Weight: 55.3 kg

DRUGS (16)
  1. LOVASTATIN [Concomitant]
     Dosage: 40 MG, QD
  2. PRILOSEC [Concomitant]
     Dosage: 20 MG, QD
     Route: 048
  3. ADVAIR DISKUS 100/50 [Concomitant]
     Dosage: 1 DF, BID
  4. KLONOPIN [Concomitant]
     Dosage: 0.5 MG, PRN
  5. CALCIUM +D                         /00188401/ [Concomitant]
     Dosage: 1 DF, QD
     Route: 048
  6. LOVAZA [Concomitant]
     Dosage: 1000 MG, BID
     Route: 048
  7. RESTASIS [Concomitant]
     Dosage: 1 DF, BID
     Route: 047
  8. PRESERVISION LUTEIN EYE VITA.+MIN.SUP.SOFTG. [Concomitant]
     Dosage: 1 DF, BID
     Route: 048
  9. SYNTHROID [Concomitant]
     Dosage: 75 UG, QD
  10. COLACE [Concomitant]
     Dosage: 100 MG, UNK
  11. COMBIVENT [Concomitant]
     Dosage: 2 DF, BID
  12. ASPIRIN [Concomitant]
     Dosage: 81 MG, UNK
     Route: 048
  13. MIRALAX [Concomitant]
     Dosage: UNK
     Route: 048
  14. SENOKOT [Concomitant]
     Dosage: 1 DF, UNK
  15. FORTEO [Suspect]
     Indication: OSTEOPOROSIS
     Dosage: 20 UG, QD
     Route: 058
     Dates: start: 20110301
  16. LUTEIN [Concomitant]
     Dosage: 6 MG, QD

REACTIONS (11)
  - EPISTAXIS [None]
  - CERUMEN IMPACTION [None]
  - SMALL INTESTINAL OBSTRUCTION [None]
  - CONTUSION [None]
  - SCOLIOSIS [None]
  - AURA [None]
  - CARDIAC MURMUR [None]
  - CONSTIPATION [None]
  - FEEDING TUBE COMPLICATION [None]
  - MALAISE [None]
  - DIZZINESS [None]
